FAERS Safety Report 6747449-X (Version None)
Quarter: 2010Q2

REPORT INFORMATION
  Report Type: 
  Country: None (occurrence: None)
  Receive Date: 20100528
  Receipt Date: 20100524
  Transmission Date: 20101027
  Serious: Yes (Death, Hospitalization, Other)
  Sender: FDA-Public Use
  Company Number: IN-ABBOTT-10R-078-0646267-00

PATIENT
  Sex: Male
  Weight: 2 kg

DRUGS (1)
  1. SURVANTA [Suspect]
     Indication: DRUG USE FOR UNKNOWN INDICATION
     Dosage: NOT REPORTED
     Dates: start: 20100511, end: 20100511

REACTIONS (4)
  - BRADYCARDIA [None]
  - CARDIAC ARREST [None]
  - HAEMORRHAGE INTRACRANIAL [None]
  - LUNG DISORDER [None]
